FAERS Safety Report 16805926 (Version 3)
Quarter: 2021Q1

REPORT INFORMATION
  Report Type: Spontaneous
  Country: CA (occurrence: CA)
  Receive Date: 20190913
  Receipt Date: 20210326
  Transmission Date: 20210419
  Serious: Yes (Hospitalization, Other)
  Sender: FDA-Public Use
  Company Number: CA-SHIRE-CA201929623

PATIENT
  Age: 42 Year
  Sex: Male

DRUGS (6)
  1. ENTYVIO [Concomitant]
     Active Substance: VEDOLIZUMAB
     Indication: COLITIS
     Dosage: UNK
  2. 476 (MESALAZINE/MESALAMINE) [Suspect]
     Active Substance: MESALAMINE
     Dosage: UNK
     Route: 054
  3. REMICADE [Concomitant]
     Active Substance: INFLIXIMAB
     Indication: COLITIS
  4. 476 (MESALAZINE/MESALAMINE) [Suspect]
     Active Substance: MESALAMINE
     Indication: COLITIS
     Dosage: UNK
     Route: 048
  5. MERCAPTOPURINE. [Concomitant]
     Active Substance: MERCAPTOPURINE
     Indication: COLITIS
     Dosage: UNK
  6. TOFACITINIB [Concomitant]
     Active Substance: TOFACITINIB
     Indication: COLITIS
     Dosage: UNK

REACTIONS (3)
  - Product use in unapproved indication [Unknown]
  - Pulmonary embolism [Recovering/Resolving]
  - Colitis [Recovering/Resolving]
